FAERS Safety Report 8174904-0 (Version None)
Quarter: 2012Q1

REPORT INFORMATION
  Report Type: 
  Country: None (occurrence: None)
  Receive Date: 20120229
  Receipt Date: 20110629
  Transmission Date: 20120608
  Serious: No
  Sender: FDA-Public Use
  Company Number: US-GLAXOSMITHKLINE-A0933887A

PATIENT
  Age: 40 Year
  Sex: Female

DRUGS (2)
  1. VALTREX [Suspect]
     Indication: GENITAL HERPES
     Dosage: 1CAPL AS REQUIRED
     Route: 048
  2. BIRTH CONTROL [Concomitant]

REACTIONS (7)
  - ASTHENIA [None]
  - MENSTRUAL DISORDER [None]
  - RENAL PAIN [None]
  - HEADACHE [None]
  - ANGER [None]
  - DEPRESSION [None]
  - FATIGUE [None]
